FAERS Safety Report 8361809-5 (Version None)
Quarter: 2012Q2

REPORT INFORMATION
  Report Type: 
  Country: None (occurrence: None)
  Receive Date: 20120515
  Receipt Date: 20120510
  Transmission Date: 20120825
  Serious: Yes (Hospitalization)
  Sender: FDA-Public Use
  Company Number: US-GLAXOSMITHKLINE-B0752323A

PATIENT
  Age: 73 Year
  Sex: Male
  Weight: 109.1 kg

DRUGS (7)
  1. COZAAR [Concomitant]
  2. AVANDIA [Suspect]
     Indication: DIABETES MELLITUS
     Dosage: 4MG PER DAY
     Route: 048
     Dates: start: 20010205, end: 20090101
  3. PROSCAR [Concomitant]
  4. CATAPRES [Concomitant]
  5. HYDRALAZINE HCL [Concomitant]
  6. LIPITOR [Concomitant]
  7. GLYBURIDE [Concomitant]

REACTIONS (2)
  - TRANSIENT ISCHAEMIC ATTACK [None]
  - CAROTID ARTERY OCCLUSION [None]
